FAERS Safety Report 21270761 (Version 1)
Quarter: 2022Q3

REPORT INFORMATION
  Report Type: Report from Study
  Country: SE (occurrence: SE)
  Receive Date: 20220830
  Receipt Date: 20220830
  Transmission Date: 20221026
  Serious: Yes (Hospitalization, Other)
  Sender: FDA-Public Use
  Company Number: SE-ACTELION-A-CH2018-181299

PATIENT
  Age: 49 Year
  Sex: Male
  Weight: 82 kg

DRUGS (5)
  1. OPSUMIT [Suspect]
     Active Substance: MACITENTAN
     Indication: Pulmonary arterial hypertension
     Dosage: 10 MG, QD
     Route: 048
     Dates: start: 20171120, end: 20180308
  2. OPSUMIT [Suspect]
     Active Substance: MACITENTAN
     Dosage: 10 MG, QD
     Route: 048
     Dates: start: 20180608, end: 20180829
  3. ADCIRCA [Suspect]
     Active Substance: TADALAFIL
     Indication: Pulmonary hypertension
     Dosage: 20 MG, QD
     Route: 048
     Dates: start: 20171123, end: 20171129
  4. ADCIRCA [Suspect]
     Active Substance: TADALAFIL
     Dosage: 20 MG, QD
     Route: 048
     Dates: start: 20180221, end: 20180829
  5. EPLERENONE [Concomitant]
     Active Substance: EPLERENONE
     Dosage: UNK
     Route: 048
     Dates: start: 20180221

REACTIONS (3)
  - Lung transplant [Unknown]
  - Pulmonary arterial hypertension [Unknown]
  - Treatment noncompliance [Unknown]

NARRATIVE: CASE EVENT DATE: 20180801
